FAERS Safety Report 6760041-6 (Version None)
Quarter: 2010Q2

REPORT INFORMATION
  Report Type: 
  Country: None (occurrence: None)
  Receive Date: 20100604
  Receipt Date: 20100525
  Transmission Date: 20101027
  Serious: Yes (Hospitalization, Other)
  Sender: FDA-Public Use
  Company Number: VAL_00423_2010

PATIENT
  Age: 34 Year
  Sex: Male

DRUGS (6)
  1. CARBAMAZEPINE [Suspect]
     Indication: COMPLEX PARTIAL SEIZURES
     Dosage: 1600 MG, 1600 MG
  2. ACETAMINOPHEN [Suspect]
     Indication: BACK PAIN
     Dosage: 2000 MG, 2500 MG
  3. ACETAMINOPHEN [Suspect]
     Indication: BACK PAIN
     Dosage: 2000 MG, 2500 MG
  4. CLOBAZAM [Concomitant]
  5. METHOCARBAMOL [Concomitant]
  6. MESALAZINE [Concomitant]

REACTIONS (11)
  - ABDOMINAL PAIN [None]
  - ANURIA [None]
  - BACK PAIN [None]
  - BALANCE DISORDER [None]
  - BLOOD CREATININE INCREASED [None]
  - CEREBELLAR SYNDROME [None]
  - DIPLOPIA [None]
  - GAIT DISTURBANCE [None]
  - HEPATIC FAILURE [None]
  - NYSTAGMUS [None]
  - TREMOR [None]
